FAERS Safety Report 5200246-9 (Version None)
Quarter: 2007Q1

REPORT INFORMATION
  Report Type: 
  Country: None (occurrence: None)
  Receive Date: 20070105
  Receipt Date: 20070104
  Transmission Date: 20070707
  Serious: Yes (Hospitalization)
  Sender: FDA-Public Use
  Company Number: GB-ROXANE LABORATORIES, INC-2007-UK-00040UK

PATIENT
  Age: 68 Year
  Sex: Female

DRUGS (2)
  1. MORPHINE SUL INJ [Suspect]
  2. CODEINE PHOSPHATE [Suspect]

REACTIONS (4)
  - OLIGURIA [None]
  - RESPIRATORY RATE DECREASED [None]
  - SOMNOLENCE [None]
  - THERAPEUTIC AGENT TOXICITY [None]
